FAERS Safety Report 22168186 (Version 1)
Quarter: 2023Q2

REPORT INFORMATION
  Report Type: Report from Study
  Country: CN (occurrence: CN)
  Receive Date: 20230403
  Receipt Date: 20230403
  Transmission Date: 20230721
  Serious: Yes (Hospitalization)
  Sender: FDA-Public Use
  Company Number: CN-TAKEDA-2023TUS032706

PATIENT
  Age: 42 Year
  Sex: Male
  Weight: 72.5 kg

DRUGS (6)
  1. VEDOLIZUMAB [Suspect]
     Active Substance: VEDOLIZUMAB
     Indication: Colitis ulcerative
     Dosage: 300 MILLIGRAM
     Route: 042
     Dates: start: 20220804
  2. MESALAMINE [Concomitant]
     Active Substance: MESALAMINE
     Dosage: UNK
     Dates: start: 20220422
  3. MESALAMINE [Concomitant]
     Active Substance: MESALAMINE
     Indication: Inflammatory bowel disease
     Dosage: UNK UNK, BID
     Route: 048
     Dates: start: 20220422
  4. MESALAMINE [Concomitant]
     Active Substance: MESALAMINE
     Dosage: UNK UNK, QD
     Route: 054
  5. BERBERINE [Concomitant]
     Active Substance: BERBERINE
     Indication: Inflammatory bowel disease
     Dosage: 0.3 GRAM, TID
     Route: 048
     Dates: start: 20230131, end: 20230204
  6. DIMETHICONE [Concomitant]
     Active Substance: DIMETHICONE
     Indication: Prophylaxis
     Dosage: 12 GRAM, QD
     Route: 048
     Dates: start: 20230310, end: 20230310

REACTIONS (3)
  - Adenomatous polyposis coli [Recovered/Resolved]
  - Constipation [Recovered/Resolved]
  - Upper respiratory tract infection [Recovered/Resolved]

NARRATIVE: CASE EVENT DATE: 20221225
